FAERS Safety Report 7626726-4 (Version None)
Quarter: 2011Q3

REPORT INFORMATION
  Report Type: 
  Country: None (occurrence: None)
  Receive Date: 20110713
  Receipt Date: 20110628
  Transmission Date: 20111222
  Serious: Yes (Hospitalization)
  Sender: FDA-Public Use
  Company Number: MTX-11-08

PATIENT
  Sex: Male

DRUGS (1)
  1. METHOTREXATE [Suspect]

REACTIONS (21)
  - HERNIA REPAIR [None]
  - RENAL FAILURE [None]
  - FALLOT'S TETRALOGY [None]
  - CYANOSIS [None]
  - PERICARDIAL EFFUSION [None]
  - DYSPHAGIA [None]
  - POST PROCEDURAL COMPLICATION [None]
  - MICROGNATHIA [None]
  - BRONCHOPULMONARY DYSPLASIA [None]
  - DEAFNESS [None]
  - CEREBRAL DISORDER [None]
  - MATERNAL DRUGS AFFECTING FOETUS [None]
  - PREMATURE BABY [None]
  - TALIPES [None]
  - KIDNEY MALFORMATION [None]
  - RETINOPATHY OF PREMATURITY [None]
  - CHYLOTHORAX [None]
  - POLYDACTYLY [None]
  - PROCEDURAL COMPLICATION [None]
  - VENTRICULAR SEPTAL DEFECT [None]
  - CONVULSION [None]
